FAERS Safety Report 8439707 (Version 3)
Quarter: 2013Q2

REPORT INFORMATION
  Report Type: Spontaneous
  Country: US (occurrence: US)
  Receive Date: 20120305
  Receipt Date: 20130502
  Transmission Date: 20140414
  Serious: No
  Sender: FDA-Public Use
  Company Number: US-PFIZER INC-2012053751

PATIENT
  Age: 80 Year
  Sex: Female

DRUGS (2)
  1. XALKORI [Suspect]
     Indication: BRONCHIAL CARCINOMA
     Dosage: 250 MG, 1X/DAY
     Dates: start: 20120215
  2. XALKORI [Suspect]
     Dosage: 200 MG, UNK
     Dates: start: 20120215

REACTIONS (5)
  - Disease progression [Unknown]
  - Bronchial carcinoma [Unknown]
  - Cough [Unknown]
  - Dizziness [Unknown]
  - Headache [Unknown]
